FAERS Safety Report 10061966 (Version 1)
Quarter: 2014Q2

REPORT INFORMATION
  Report Type: Spontaneous
  Country: US (occurrence: US)
  Receive Date: 20140407
  Receipt Date: 20140407
  Transmission Date: 20141212
  Serious: Yes (Other)
  Sender: FDA-Public Use
  Company Number: US-SA-2014SA040806

PATIENT
  Sex: 0

DRUGS (1)
  1. AMBIEN [Suspect]
     Route: 065

REACTIONS (4)
  - Victim of sexual abuse [Unknown]
  - Intentional product misuse [Unknown]
  - Victim of chemical submission [Unknown]
  - Loss of consciousness [Unknown]
